FAERS Safety Report 16080584 (Version 1)
Quarter: 2019Q1

REPORT INFORMATION
  Report Type: Spontaneous
  Country: US (occurrence: US)
  Receive Date: 20190315
  Receipt Date: 20190315
  Transmission Date: 20190418
  Serious: No
  Sender: FDA-Public Use
  Company Number: US-PTC THERAPEUTICS, INC.-US-2019PTC000100

PATIENT
  Age: 17 Year
  Sex: Male

DRUGS (1)
  1. EMFLAZA [Suspect]
     Active Substance: DEFLAZACORT
     Indication: MUSCULAR DYSTROPHY
     Dosage: 54 MG, EVERY FRIDAY, SATURDAY, AND SUNDAY
     Route: 048
     Dates: start: 20180929

REACTIONS (4)
  - Pollakiuria [Unknown]
  - Off label use [Unknown]
  - Influenza [Unknown]
  - Feeling hot [Unknown]

NARRATIVE: CASE EVENT DATE: 20180929
